FAERS Safety Report 7652677-5 (Version None)
Quarter: 2011Q3

REPORT INFORMATION
  Report Type: 
  Country: None (occurrence: None)
  Receive Date: 20110803
  Receipt Date: 20110721
  Transmission Date: 20111222
  Serious: No
  Sender: FDA-Public Use
  Company Number: CA-ELI_LILLY_AND_COMPANY-CA201107005690

PATIENT
  Sex: Female

DRUGS (10)
  1. ZYPREXA [Suspect]
     Dosage: 12.5 MG, QD
  2. ZYPREXA [Suspect]
     Dosage: 5 MG, EACH EVENING
  3. ZYPREXA [Suspect]
     Dosage: 10 MG, EACH EVENING
  4. ZYPREXA [Suspect]
     Dosage: 7.5 MG, EACH EVENING
  5. ALTACE [Concomitant]
  6. SERAX [Concomitant]
  7. LITHIUM CARBONATE [Concomitant]
  8. ZYPREXA [Suspect]
     Dosage: 2.5 MG, EACH EVENING
  9. HALDOL [Concomitant]
  10. ZYPREXA [Suspect]
     Indication: BIPOLAR DISORDER
     Dosage: 15 MG, QD
     Dates: start: 20060125

REACTIONS (9)
  - DIABETES MELLITUS [None]
  - BLOOD CREATININE INCREASED [None]
  - GASTROENTERITIS [None]
  - GLOSSITIS [None]
  - SINUS BRADYCARDIA [None]
  - BLOOD TRIGLYCERIDES INCREASED [None]
  - EPISTAXIS [None]
  - NEUTROPENIA [None]
  - PALPITATIONS [None]
